FAERS Safety Report 17851956 (Version 3)
Quarter: 2020Q3

REPORT INFORMATION
  Report Type: Spontaneous
  Country: US (occurrence: US)
  Receive Date: 20200602
  Receipt Date: 20200730
  Transmission Date: 20201103
  Serious: No
  Sender: FDA-Public Use
  Company Number: US-EMD SERONO-9164610

PATIENT
  Age: 36 Year
  Sex: Male

DRUGS (4)
  1. REBIF [Suspect]
     Active Substance: INTERFERON BETA-1A
     Indication: MULTIPLE SCLEROSIS
     Dosage: FIRST 2 WEEKS
     Route: 058
     Dates: start: 20200428, end: 202005
  2. REBIF [Suspect]
     Active Substance: INTERFERON BETA-1A
     Dosage: WEEK 3 AND 4
     Route: 058
     Dates: start: 202005
  3. REBIF [Suspect]
     Active Substance: INTERFERON BETA-1A
     Route: 058
     Dates: end: 202007
  4. BENADRYL [Suspect]
     Active Substance: DIPHENHYDRAMINE HYDROCHLORIDE
     Indication: INFLUENZA LIKE ILLNESS

REACTIONS (14)
  - Hypoaesthesia [Not Recovered/Not Resolved]
  - Lack of injection site rotation [Unknown]
  - Injection site pain [Unknown]
  - Fear of injection [Unknown]
  - Paraesthesia [Not Recovered/Not Resolved]
  - Multiple sclerosis [Unknown]
  - Sensory disturbance [Not Recovered/Not Resolved]
  - Muscular weakness [Not Recovered/Not Resolved]
  - Feeling abnormal [Unknown]
  - Injection site reaction [Unknown]
  - Hangover [Unknown]
  - Patient dissatisfaction with treatment [Unknown]
  - Influenza like illness [Not Recovered/Not Resolved]
  - Wrong technique in product usage process [Unknown]

NARRATIVE: CASE EVENT DATE: 2020
